FAERS Safety Report 17795326 (Version 1)
Quarter: 2020Q2

REPORT INFORMATION
  Report Type: Spontaneous
  Country: US (occurrence: US)
  Receive Date: 20200516
  Receipt Date: 20200516
  Transmission Date: 20200714
  Serious: No
  Sender: FDA-Public Use
  Company Number: US-AUROBINDO-AUR-APU-2018-040342

PATIENT
  Sex: Female

DRUGS (2)
  1. TOPIRAMATE. [Suspect]
     Active Substance: TOPIRAMATE
     Indication: SEIZURE
     Dosage: 1 DOSAGE FORM, DAILY, IN MORNINIG
     Route: 048
     Dates: start: 20180718
  2. TOPIRAMATE TABLETS 200 MG [Suspect]
     Active Substance: TOPIRAMATE
     Indication: SEIZURE
     Dosage: 1 DOSAGE FORM, DAILY, IN EVENING
     Route: 048
     Dates: start: 20180718

REACTIONS (1)
  - Product dose omission [Unknown]
